FAERS Safety Report 24186296 (Version 5)
Quarter: 2025Q1

REPORT INFORMATION
  Report Type: Spontaneous
  Country: JP (occurrence: JP)
  Receive Date: 20240808
  Receipt Date: 20250130
  Transmission Date: 20250409
  Serious: Yes (Death, Hospitalization)
  Sender: GENMAB
  Company Number: JP-GENMAB-2024-02799

PATIENT
  Age: 77 Year
  Sex: Male

DRUGS (12)
  1. EPKINLY [Suspect]
     Active Substance: EPCORITAMAB-BYSP
     Indication: Diffuse large B-cell lymphoma
     Route: 058
     Dates: start: 20240520, end: 20240520
  2. EPKINLY [Suspect]
     Active Substance: EPCORITAMAB-BYSP
     Route: 058
     Dates: start: 20240527, end: 20240527
  3. EPKINLY [Suspect]
     Active Substance: EPCORITAMAB-BYSP
     Dosage: 48 MILLIGRAM, WEEKLY
     Route: 058
     Dates: start: 20240603, end: 20240708
  4. PREDNISOLONE [Concomitant]
     Active Substance: PREDNISOLONE
     Indication: Prophylaxis
     Dates: start: 202405, end: 2024
  5. PREDNISOLONE [Concomitant]
     Active Substance: PREDNISOLONE
     Indication: Diarrhoea
  6. CALONAL [Concomitant]
     Active Substance: ACETAMINOPHEN
     Indication: Prophylaxis
     Dates: start: 202405, end: 2024
  7. RESTAMIN KOWA [DIPHENHYDRAMINE] [Concomitant]
     Indication: Prophylaxis
     Dates: start: 202405, end: 2024
  8. MONTELUKAST SODIUM [Concomitant]
     Active Substance: MONTELUKAST SODIUM
     Indication: Prophylaxis
     Dates: start: 202405, end: 2024
  9. BROTIZOLAM [Concomitant]
     Active Substance: BROTIZOLAM
     Dates: start: 20231107
  10. TRIAZOLAM [Concomitant]
     Active Substance: TRIAZOLAM
     Dates: start: 20231107
  11. BELSOMRA [Concomitant]
     Active Substance: SUVOREXANT
     Dates: start: 20231107
  12. LANSOPRAZOLE [Concomitant]
     Active Substance: LANSOPRAZOLE
     Dates: start: 20231107

REACTIONS (2)
  - Liver disorder [Fatal]
  - Dermatitis [Recovered/Resolved]

NARRATIVE: CASE EVENT DATE: 20240722
